FAERS Safety Report 4956366-7 (Version None)
Quarter: 2006Q1

REPORT INFORMATION
  Report Type: 
  Country: None (occurrence: None)
  Receive Date: 20060329
  Receipt Date: 20050209
  Transmission Date: 20060701
  Serious: Yes (Other)
  Sender: FDA-Public Use
  Company Number: PHEH2005US01858

PATIENT
  Age: 54 Year
  Sex: Female

DRUGS (14)
  1. ZOMETA [Suspect]
     Indication: METASTASES TO BONE
     Dosage: 4 MG EVERY 3-4 WEEKS
     Dates: start: 20040901
  2. PROTONIX [Concomitant]
  3. ELAVIL [Concomitant]
  4. LIPITOR                                 /NET/ [Concomitant]
  5. FLEXERIL [Concomitant]
  6. ADRIAMYCIN PFS [Concomitant]
  7. CYTOXAN [Concomitant]
  8. FLUOROURACIL [Concomitant]
  9. ALOXI [Concomitant]
  10. DECADRON SRC [Concomitant]
  11. ATIVAN [Concomitant]
  12. ARANESP [Concomitant]
  13. LORCET-HD [Concomitant]
  14. OXYCONTIN [Concomitant]

REACTIONS (9)
  - ANXIETY [None]
  - BONE DISORDER [None]
  - INJURY [None]
  - MALIGNANT NEOPLASM PROGRESSION [None]
  - OSTEONECROSIS [None]
  - PAIN [None]
  - PAIN IN JAW [None]
  - TOOTH DISORDER [None]
  - TOOTH EXTRACTION [None]
